FAERS Safety Report 15335587 (Version 2)
Quarter: 2018Q4

REPORT INFORMATION
  Report Type: Spontaneous
  Country: DE (occurrence: DE)
  Receive Date: 20180830
  Receipt Date: 20181002
  Transmission Date: 20190204
  Serious: Yes (Hospitalization)
  Sender: FDA-Public Use
  Company Number: DE-NOVOPROD-612113

PATIENT
  Age: 43 Year
  Sex: Female
  Weight: 63 kg

DRUGS (3)
  1. NOVORAPID [Suspect]
     Active Substance: INSULIN ASPART
     Dosage: 18.75 IE, QD
     Route: 058
     Dates: start: 20180718, end: 20180718
  2. NOVORAPID [Suspect]
     Active Substance: INSULIN ASPART
     Indication: TYPE 1 DIABETES MELLITUS
     Dosage: 18.75/DAY
     Route: 058
     Dates: start: 20170707
  3. NOVORAPID [Suspect]
     Active Substance: INSULIN ASPART
     Dosage: OVER 30 IU (DOSE INCREASED)
     Route: 058
     Dates: start: 20180717, end: 20180717

REACTIONS (3)
  - Product leakage [Unknown]
  - Hyperglycaemia [Recovered/Resolved]
  - Pain [Recovered/Resolved]

NARRATIVE: CASE EVENT DATE: 20180717
